FAERS Safety Report 8428103-5 (Version None)
Quarter: 2012Q2

REPORT INFORMATION
  Report Type: 
  Country: None (occurrence: None)
  Receive Date: 20120611
  Receipt Date: 20120425
  Transmission Date: 20120825
  Serious: No
  Sender: FDA-Public Use
  Company Number: US-ASTRAZENECA-2012SE27298

PATIENT
  Age: 56 Year
  Sex: Female
  Weight: 54.4 kg

DRUGS (2)
  1. RHINOCORT [Suspect]
     Dosage: TWO SPRAYS PER NOSTRIL PER DAY
     Route: 045
  2. RHINOCORT [Suspect]
     Indication: SINUSITIS
     Dosage: ONE SPRAY PER NOSTRIL PER DAY PREVIOUSLY
     Route: 045
     Dates: start: 20110901

REACTIONS (3)
  - OFF LABEL USE [None]
  - CHILLS [None]
  - MALAISE [None]
